FAERS Safety Report 5262667-8 (Version None)
Quarter: 2007Q1

REPORT INFORMATION
  Report Type: 
  Country: None (occurrence: None)
  Receive Date: 20070312
  Receipt Date: 20070301
  Transmission Date: 20070707
  Serious: Yes (Other)
  Sender: FDA-Public Use
  Company Number: 2006AC02372

PATIENT
  Age: 689 Month
  Sex: Female
  Weight: 68 kg

DRUGS (4)
  1. ARIMIDEX [Suspect]
     Indication: BREAST CANCER
     Route: 048
     Dates: start: 20060208, end: 20060920
  2. ARIMIDEX [Suspect]
     Route: 048
     Dates: start: 20061004, end: 20061126
  3. PLAQUENIL [Concomitant]
     Indication: SYSTEMIC LUPUS ERYTHEMATOSUS
     Dosage: STARTED YEARS AGO
     Route: 048
  4. PYRIDOXINE HCL [Concomitant]
     Dosage: STARTED YEARS AGO
     Route: 048

REACTIONS (4)
  - HYPERLIPIDAEMIA [None]
  - HYPOTHYROIDISM [None]
  - MOOD ALTERED [None]
  - TACHYCARDIA [None]
